FAERS Safety Report 12877204 (Version 1)
Quarter: 2016Q4

REPORT INFORMATION
  Report Type: Spontaneous
  Country: US (occurrence: US)
  Receive Date: 20161023
  Receipt Date: 20161023
  Transmission Date: 20170207
  Serious: Yes (Hospitalization, Other)
  Sender: FDA-Public Use
  Company Number: None

PATIENT
  Age: 1 Year
  Sex: Female

DRUGS (1)
  1. ORAJEL TEETHING (HOMEOPATHIC) [Suspect]
     Active Substance: HOMEOPATHICS
     Indication: TEETHING
     Route: 061
     Dates: start: 20160130, end: 20160205

REACTIONS (3)
  - Gastroenteritis viral [None]
  - Seizure [None]
  - Central nervous system infection [None]

NARRATIVE: CASE EVENT DATE: 20160205
